FAERS Safety Report 7349858-7 (Version None)
Quarter: 2011Q1

REPORT INFORMATION
  Report Type: 
  Country: None (occurrence: None)
  Receive Date: 20110314
  Receipt Date: 20110304
  Transmission Date: 20110831
  Serious: Yes (Hospitalization)
  Sender: FDA-Public Use
  Company Number: US-SANOFI-AVENTIS-2011SA013874

PATIENT
  Sex: Male

DRUGS (2)
  1. COUMADIN [Concomitant]
  2. MULTAQ [Suspect]
     Route: 065
     Dates: start: 20101101, end: 20110101

REACTIONS (1)
  - LUNG INFILTRATION [None]
